FAERS Safety Report 4379892-0 (Version None)
Quarter: 2004Q2

REPORT INFORMATION
  Report Type: 
  Country: None (occurrence: None)
  Receive Date: 20040614
  Receipt Date: 20040603
  Transmission Date: 20050107
  Serious: Yes (Life-Threatening)
  Sender: FDA-Public Use
  Company Number: 200409076

PATIENT
  Age: 72 Year
  Sex: Female

DRUGS (6)
  1. STREPTOKINASE [Suspect]
     Dosage: 1.5 MIU DAILY IV
     Route: 042
  2. ASPIRIN [Concomitant]
  3. NITROGLYCERIN [Concomitant]
  4. HEPARIN [Concomitant]
  5. CALCITONIN [Concomitant]
  6. CALCIUM [Concomitant]

REACTIONS (9)
  - ACTIVATED PARTIAL THROMBOPLASTIN TIME PROLONGED [None]
  - AREFLEXIA [None]
  - ASTHENIA [None]
  - BACK PAIN [None]
  - EXTRADURAL HAEMATOMA [None]
  - HYPOAESTHESIA [None]
  - HYPOTONIA [None]
  - SPINAL CORD COMPRESSION [None]
  - URINARY RETENTION [None]
